FAERS Safety Report 23039890 (Version 1)
Quarter: 2023Q4

REPORT INFORMATION
  Report Type: Spontaneous
  Country: CA (occurrence: CA)
  Receive Date: 20231006
  Receipt Date: 20231006
  Transmission Date: 20240110
  Serious: Yes (Other)
  Sender: FDA-Public Use
  Company Number: CA-FreseniusKabi-FK202315763

PATIENT
  Age: 46 Year
  Sex: Female

DRUGS (3)
  1. VANCOMYCIN [Suspect]
     Active Substance: VANCOMYCIN
     Indication: Peritonitis bacterial
     Dosage: DOSAGE FORM : NOT SPECIFIED
     Route: 033
  2. DIANEAL LOW CALCIUM PERITONEAL DIALYSIS SOLUTION WITH DEXTROSE [Suspect]
     Active Substance: CALCIUM CHLORIDE\DEXTROSE\MAGNESIUM CHLORIDE\SODIUM CHLORIDE\SODIUM LACTATE
     Indication: Peritonitis bacterial
     Dosage: DOSAGE FORM : SOLUTION DIALYSIS?AS REQUIRED
     Route: 033
  3. DIANEAL LOW CALCIUM PERITONEAL DIALYSIS SOLUTION WITH DEXTROSE [Suspect]
     Active Substance: CALCIUM CHLORIDE\DEXTROSE\MAGNESIUM CHLORIDE\SODIUM CHLORIDE\SODIUM LACTATE
     Dosage: DOSAGE FORM : SOLUTION DIALYSIS?EVERY 1 DAY
     Route: 033

REACTIONS (5)
  - Device malfunction [Recovered/Resolved]
  - Drug hypersensitivity [Recovered/Resolved]
  - Increased intraperitoneal volume [Recovered/Resolved]
  - Peritonitis bacterial [Recovered/Resolved]
  - Product container issue [Recovered/Resolved]
